FAERS Safety Report 6932645-9 (Version None)
Quarter: 2010Q3

REPORT INFORMATION
  Report Type: 
  Country: None (occurrence: None)
  Receive Date: 20100817
  Receipt Date: 20100810
  Transmission Date: 20110219
  Serious: Yes (Hospitalization, Disabling, Other)
  Sender: FDA-Public Use
  Company Number: 2009AL006956

PATIENT
  Age: 62 Year
  Sex: Female
  Weight: 82.3732 kg

DRUGS (87)
  1. METOCLOPRAMIDE [Suspect]
     Dosage: 10 MG;PRN;
     Dates: start: 20030704, end: 20090601
  2. ACETAMINOPHEN AND HYDROCODONE BITARTRATE [Concomitant]
  3. PHENAZOPYRIDINE HCL TAB [Concomitant]
  4. CLARINEX [Concomitant]
  5. PREDNISONE [Concomitant]
  6. LORATADINE [Concomitant]
  7. GEMFIBROZIL [Concomitant]
  8. ALPRAZOLAM [Concomitant]
  9. TEQUIN [Concomitant]
  10. RHINOCORT [Concomitant]
  11. PRILOSEC [Concomitant]
  12. VERAPAMIL [Concomitant]
  13. MACROBID [Concomitant]
  14. ESTRADIOL [Concomitant]
  15. CLARITIN [Concomitant]
  16. OMEPRAZOLE [Concomitant]
  17. ZITHROMAX [Concomitant]
  18. CYCLOBENZAPRINE [Concomitant]
  19. WELLBUTRIN XL [Concomitant]
  20. AMBIEN [Concomitant]
  21. GUAIFENESIN [Concomitant]
  22. HYDROCORTISONE VALERATE [Concomitant]
  23. TAZTIA XT [Concomitant]
  24. XANAX [Concomitant]
  25. AUGMENTIN XR [Concomitant]
  26. MEPERIDINE W/PROMETHAZINE [Concomitant]
  27. CHLORDIAZEPOXIDE [Concomitant]
  28. BENICAR [Concomitant]
  29. CLINDAMYCIN [Concomitant]
  30. METHYLPREDNISOLONE [Concomitant]
  31. NEXIUM [Concomitant]
  32. PROPOXYPHENE HCL AND ACETAMINOPHEN [Concomitant]
  33. SULFAMETHOXAZOLE AND TRIMETHOPRIM [Concomitant]
  34. ACIPHEX [Concomitant]
  35. PROTONIX [Concomitant]
  36. TEMAZEPAM [Concomitant]
  37. AMOXICILLIN [Concomitant]
  38. LORAZEPAM [Concomitant]
  39. NAPROXEN [Concomitant]
  40. LEVAQUIN [Concomitant]
  41. METRONIDAZOLE [Concomitant]
  42. CIPROFLOXACIN [Concomitant]
  43. HYDROXYZINE [Concomitant]
  44. HYDROCHLOROTHIAZIDE [Concomitant]
  45. OXYCODONE AND ACETAMINOPHEN [Concomitant]
  46. PENICILLIN VK [Concomitant]
  47. LIDOCAINE HCL VISCOUS [Concomitant]
  48. SERTRALINE HYDROCHLORIDE [Concomitant]
  49. BUTALBITAL ACETAMINOPHEN AND CAFFEINE [Concomitant]
  50. ATENOLOL [Concomitant]
  51. PROMETHAZINE [Concomitant]
  52. POLYETHYLENE GLYCOL [Concomitant]
  53. MEPROZINE [Concomitant]
  54. COREG [Concomitant]
  55. AVELOX [Concomitant]
  56. NASONEX [Concomitant]
  57. IBUPROFEN [Concomitant]
  58. TRAZODONE HCL [Concomitant]
  59. DIOVAN [Concomitant]
  60. FUROSEMIDE [Concomitant]
  61. LEVOTHYROXINE [Concomitant]
  62. LISINOPRIL [Concomitant]
  63. SIMVASTATIN [Concomitant]
  64. KETOROLAC [Concomitant]
  65. MAXIPHEN [Concomitant]
  66. FLUCONAZOLE [Concomitant]
  67. SKELAXIN [Concomitant]
  68. ESTRACE [Concomitant]
  69. CORDRAN [Concomitant]
  70. DOXYCYCLINE [Concomitant]
  71. SUPRAX [Concomitant]
  72. CEPHALEXIN [Concomitant]
  73. MUPIROCIN [Concomitant]
  74. LOPID [Concomitant]
  75. ALLEGRA D 24 HOUR [Concomitant]
  76. VITAMIN B12 FOR INJECTION [Concomitant]
  77. FLEXERIL [Concomitant]
  78. DECADRON [Concomitant]
  79. CLARITIN [Concomitant]
  80. MEDROL [Concomitant]
  81. HYDROCORTISONE [Concomitant]
  82. HYDROXYZINE [Concomitant]
  83. PREDNISONE [Concomitant]
  84. FLAGYL [Concomitant]
  85. ATIVAN [Concomitant]
  86. SEROQUEL [Concomitant]
  87. OMEPRAZOLE [Concomitant]

REACTIONS (50)
  - ACTIVITIES OF DAILY LIVING IMPAIRED [None]
  - ALCOHOL USE [None]
  - ANXIETY [None]
  - BACK PAIN [None]
  - BLOOD MAGNESIUM DECREASED [None]
  - BLOOD POTASSIUM DECREASED [None]
  - BLOOD PRESSURE INCREASED [None]
  - CARPAL TUNNEL SYNDROME [None]
  - CHEST PAIN [None]
  - COLONIC POLYP [None]
  - CONTUSION [None]
  - CUBITAL TUNNEL SYNDROME [None]
  - DEPRESSION [None]
  - DIARRHOEA [None]
  - DISTURBANCE IN ATTENTION [None]
  - DIVORCED [None]
  - DIZZINESS [None]
  - DRUG ABUSE [None]
  - ECCHYMOSIS [None]
  - ECONOMIC PROBLEM [None]
  - FALL [None]
  - FATIGUE [None]
  - HEAD INJURY [None]
  - HEADACHE [None]
  - IMPAIRED WORK ABILITY [None]
  - INCORRECT DOSE ADMINISTERED [None]
  - INSOMNIA [None]
  - JOINT DISLOCATION [None]
  - JOINT RANGE OF MOTION DECREASED [None]
  - JUDGEMENT IMPAIRED [None]
  - MARITAL PROBLEM [None]
  - MOVEMENT DISORDER [None]
  - MULTIPLE INJURIES [None]
  - MUSCLE SPASMS [None]
  - MUSCULOSKELETAL DISCOMFORT [None]
  - MUSCULOSKELETAL PAIN [None]
  - NECK PAIN [None]
  - PAIN [None]
  - PALPITATIONS [None]
  - POST PROCEDURAL DISCOMFORT [None]
  - POST-TRAUMATIC STRESS DISORDER [None]
  - RASH [None]
  - RIB FRACTURE [None]
  - ROAD TRAFFIC ACCIDENT [None]
  - SKIN LACERATION [None]
  - STRESS [None]
  - SUICIDAL IDEATION [None]
  - SWELLING [None]
  - SYNCOPE [None]
  - VERTIGO [None]
